FAERS Safety Report 8121587 (Version 4)
Quarter: 2013Q3

REPORT INFORMATION
  Report Type: Spontaneous
  Country: US (occurrence: US)
  Receive Date: 20110906
  Receipt Date: 20130827
  Transmission Date: 20140515
  Serious: Yes (Hospitalization)
  Sender: FDA-Public Use
  Company Number: US-GLAXOSMITHKLINE-A0890371A

PATIENT
  Sex: Male
  Weight: 109.1 kg

DRUGS (4)
  1. AVANDIA [Suspect]
     Indication: DIABETES MELLITUS
     Dosage: 4MG PER DAY
     Route: 048
     Dates: start: 200201, end: 2007
  2. ATENOLOL [Concomitant]
  3. LISINOPRIL [Concomitant]
  4. TENORMIN [Concomitant]

REACTIONS (4)
  - Cardiomyopathy [Unknown]
  - Atrioventricular block complete [Unknown]
  - Arrhythmia [Unknown]
  - Cardiac failure congestive [Unknown]
